FAERS Safety Report 4266835-3 (Version None)
Quarter: 2004Q1

REPORT INFORMATION
  Report Type: 
  Country: None (occurrence: None)
  Receive Date: 20040108
  Receipt Date: 20040108
  Transmission Date: 20041129
  Serious: Yes (Other)
  Sender: FDA-Public Use
  Company Number: None

PATIENT
  Age: 43 Year
  Sex: Female
  Weight: 83.9154 kg

DRUGS (2)
  1. ADVAIR DISKUS 100/50 [Suspect]
     Indication: ASTHMA
     Dosage: 1 PUFF 2X DAILY RESPIRATORY
     Route: 055
     Dates: start: 20021207, end: 20040107
  2. ADVAIR DISKUS 100/50 [Suspect]
     Indication: HYPERSENSITIVITY
     Dosage: 1 PUFF 2X DAILY RESPIRATORY
     Route: 055
     Dates: start: 20021207, end: 20040107

REACTIONS (4)
  - BREAST INFECTION [None]
  - CANDIDIASIS [None]
  - CHEST PAIN [None]
  - NIPPLE DISORDER [None]
